FAERS Safety Report 17772652 (Version 1)
Quarter: 2020Q2

REPORT INFORMATION
  Report Type: Spontaneous
  Country: CZ (occurrence: CZ)
  Receive Date: 20200512
  Receipt Date: 20200512
  Transmission Date: 20200714
  Serious: Yes (Other)
  Sender: FDA-Public Use
  Company Number: CZ-TEVA-2020-CZ-1234968

PATIENT
  Sex: Female

DRUGS (4)
  1. VECTIBIX [Suspect]
     Active Substance: PANITUMUMAB
     Indication: COLORECTAL CANCER
     Dosage: 8 CYCLES OF COMBINED THERAPY AND 6 CYCLES OF VECTIBIX MONOTHERAPY IN TOTAL.
     Route: 042
     Dates: start: 201810
  2. OXALIPLATIN. [Suspect]
     Active Substance: OXALIPLATIN
     Indication: COLORECTAL CANCER
     Dosage: 8 CYCLES ADMINISTERED IN TOTAL
     Route: 042
     Dates: start: 201810
  3. FOLINIC ACID [Suspect]
     Active Substance: LEUCOVORIN
     Indication: COLORECTAL CANCER
     Dosage: 8 CYCLES IN TOTAL
     Route: 042
     Dates: start: 201810
  4. 5-FLUOROURACIL [Suspect]
     Active Substance: FLUOROURACIL
     Indication: COLORECTAL CANCER
     Dosage: 8 CYCLES IN TOTAL
     Route: 042
     Dates: start: 201810

REACTIONS (2)
  - Gastrointestinal toxicity [Recovered/Resolved]
  - Haematotoxicity [Recovered/Resolved]
